FAERS Safety Report 4763733-3 (Version None)
Quarter: 2005Q3

REPORT INFORMATION
  Report Type: 
  Country: None (occurrence: None)
  Receive Date: 20050908
  Receipt Date: 20041210
  Transmission Date: 20060218
  Serious: Yes (Death)
  Sender: FDA-Public Use
  Company Number: CA-ROCHE-389203

PATIENT
  Age: 57 Year
  Sex: Male
  Weight: 126.1 kg

DRUGS (4)
  1. XENICAL [Suspect]
     Indication: OBESITY
     Route: 048
     Dates: start: 20040830
  2. LORAZEPAM [Concomitant]
     Dosage: DOSAGE REGIMEN REPORTED AS ^AS NEEDED^
  3. ASPIRIN [Concomitant]
  4. MAVIK [Concomitant]

REACTIONS (1)
  - MYOCARDIAL INFARCTION [None]
